FAERS Safety Report 4375839-1 (Version None)
Quarter: 2004Q2

REPORT INFORMATION
  Report Type: 
  Country: None (occurrence: None)
  Receive Date: 20040609
  Receipt Date: 20040609
  Transmission Date: 20050107
  Serious: Yes (Other)
  Sender: FDA-Public Use
  Company Number: None

PATIENT
  Age: 21 Month
  Sex: Male

DRUGS (4)
  1. SYNAGIS [Suspect]
     Dosage: IM RT LEG
     Route: 030
     Dates: start: 20040309, end: 20040309
  2. SYNAGIS [Suspect]
     Dosage: IM LEFT LEG
     Route: 030
     Dates: start: 20040309
  3. ALBUTEROL [Concomitant]
  4. XOPENEX [Concomitant]

REACTIONS (2)
  - DECREASED APPETITE [None]
  - PYREXIA [None]
